FAERS Safety Report 11720518 (Version 1)
Quarter: 2015Q4

REPORT INFORMATION
  Report Type: Report from Study
  Country: FR (occurrence: FR)
  Receive Date: 20151110
  Receipt Date: 20151110
  Transmission Date: 20160304
  Serious: Yes (Hospitalization, Other)
  Sender: FDA-Public Use
  Company Number: FR-GILEAD-2015-0180587

PATIENT
  Age: 82 Year
  Sex: Male
  Weight: 85 kg

DRUGS (7)
  1. SOFOSBUVIR [Suspect]
     Active Substance: SOFOSBUVIR
     Indication: CHRONIC HEPATITIS C
     Dosage: 400 MG, QD
     Route: 065
     Dates: start: 20140820, end: 20141112
  2. PREVISCAN                          /00789001/ [Concomitant]
     Active Substance: FLUINDIONE
     Indication: HYPERTENSION
     Dosage: 20 MG, QD
     Route: 065
     Dates: start: 20120127
  3. RAMIPRIL. [Concomitant]
     Active Substance: RAMIPRIL
     Indication: HYPERTENSION
     Dosage: 2.5 MG, QD
     Route: 065
     Dates: start: 20141106
  4. DITROPAN [Concomitant]
     Active Substance: OXYBUTYNIN CHLORIDE
     Indication: URINARY INCONTINENCE
     Dosage: 5 MG, QD
     Route: 065
  5. SIMEPREVIR [Interacting]
     Active Substance: SIMEPREVIR
     Indication: HEPATITIS C
     Dosage: 150 MG, QD
     Route: 065
     Dates: start: 20140820, end: 20141112
  6. INEXIUM                            /01479302/ [Concomitant]
     Active Substance: ESOMEPRAZOLE MAGNESIUM
     Indication: GASTROOESOPHAGEAL REFLUX DISEASE
     Dosage: 40 MG, QD
     Route: 065
  7. CORDARONE [Interacting]
     Active Substance: AMIODARONE HYDROCHLORIDE
     Indication: ARRHYTHMIA
     Dosage: 200 MG, QD
     Route: 065

REACTIONS (2)
  - Loss of consciousness [Unknown]
  - Headache [Unknown]

NARRATIVE: CASE EVENT DATE: 20141031
